FAERS Safety Report 8416350-8 (Version None)
Quarter: 2012Q2

REPORT INFORMATION
  Report Type: 
  Country: None (occurrence: None)
  Receive Date: 20120606
  Receipt Date: 20120522
  Transmission Date: 20120825
  Serious: Yes (Hospitalization, Congenital Anomaly)
  Sender: FDA-Public Use
  Company Number: DE-ARROW GEN-2012-09071

PATIENT
  Sex: Female
  Weight: 2.75 kg

DRUGS (7)
  1. CARBAMAZEPINE [Suspect]
     Indication: EPILEPSY
     Dosage: 600 [MG/D ]/POSTPARTAL DOSE 1000 MG/D
     Route: 064
     Dates: start: 20110608, end: 20111013
  2. LAMOTRIGINE [Concomitant]
     Indication: EPILEPSY
     Dosage: 175 [MG/D ]/INCREASING DOSE FROM 25 MG/D TO 175 MG/D, STOPPED BECAUSE OF AGGRESSIVENESS
     Route: 064
     Dates: start: 20110329, end: 20110525
  3. CLOBAZAM [Suspect]
     Indication: EPILEPSY
     Dosage: 30 [MG/D ]/ SINCE 18.7.: 25MG/D, FROM GW 32 TO 33+1: 20 MG/D, FROM GW 33+2 UNTIL DELIVERY 15 MG/D
     Route: 064
     Dates: start: 20110329, end: 20111013
  4. VALPROATE SODIUM [Suspect]
     Indication: EPILEPSY
     Dosage: 1200 [MG/D ]/ +PREC. SINCE 4TH YEAR OF LIFE, 2X600 MG/D
     Route: 064
     Dates: start: 20110111, end: 20110329
  5. FOLIC ACID [Concomitant]
     Indication: PROPHYLAXIS OF NEURAL TUBE DEFECT
     Dosage: 5 [MG/D ]/ -?
     Route: 064
     Dates: start: 20110329, end: 20110607
  6. LEVOTHYROXINE SODIUM [Concomitant]
     Indication: HYPOTHYROIDISM
     Dosage: 50 [+#956;G/D ]
     Route: 064
     Dates: start: 20110111, end: 20111013
  7. TOPIRAMATE [Suspect]
     Indication: EPILEPSY
     Dosage: 300 [MG/D ]/2X150 MG/D
     Route: 064
     Dates: start: 20110111, end: 20111013

REACTIONS (5)
  - VENTRICULAR SEPTAL DEFECT [None]
  - CONGENITAL ARTERIAL MALFORMATION [None]
  - SMALL FOR DATES BABY [None]
  - CONGENITAL CYSTIC KIDNEY DISEASE [None]
  - ATRIAL SEPTAL DEFECT [None]
